FAERS Safety Report 24887012 (Version 1)
Quarter: 2025Q1

REPORT INFORMATION
  Report Type: Spontaneous
  Country: GB (occurrence: GB)
  Receive Date: 20250127
  Receipt Date: 20250127
  Transmission Date: 20250409
  Serious: Yes (Other)
  Sender: TEVA
  Company Number: GB-HETERO-AMR2024GB04234

PATIENT

DRUGS (1)
  1. GABAPENTIN [Suspect]
     Active Substance: GABAPENTIN
     Indication: Analgesic therapy
     Route: 065

REACTIONS (3)
  - Intestinal haemorrhage [Unknown]
  - Gastrointestinal pain [Unknown]
  - Drug ineffective [Unknown]

NARRATIVE: CASE EVENT DATE: 20241001
